FAERS Safety Report 7727594-2 (Version None)
Quarter: 2011Q3

REPORT INFORMATION
  Report Type: 
  Country: None (occurrence: None)
  Receive Date: 20110902
  Receipt Date: 20110830
  Transmission Date: 20111222
  Serious: No
  Sender: FDA-Public Use
  Company Number: CA-PFIZER INC-2011188244

PATIENT
  Age: 73 Year
  Sex: Female

DRUGS (5)
  1. APO-PANTOPRAZOLE [Concomitant]
     Indication: GASTRIC ULCER
  2. SYMBICORT [Concomitant]
     Indication: ASTHMA
  3. GLUCOPHAGE [Concomitant]
  4. ATORVASTATIN [Concomitant]
  5. LATANOPROST [Suspect]
     Indication: GLAUCOMA
     Dosage: 1 GTT IN BOTH EYES, 1X/DAY AT BEDTIME
     Route: 047

REACTIONS (3)
  - LACRIMATION INCREASED [None]
  - EYE PAIN [None]
  - EYE IRRITATION [None]
